FAERS Safety Report 5504922-X (Version None)
Quarter: 2007Q4

REPORT INFORMATION
  Report Type: 
  Country: None (occurrence: None)
  Receive Date: 20071102
  Receipt Date: 20071025
  Transmission Date: 20080405
  Serious: Yes (Other)
  Sender: FDA-Public Use
  Company Number: PHBS2007BR17915

PATIENT
  Age: 86 Year
  Sex: Male
  Weight: 62 kg

DRUGS (7)
  1. AMLODIPINE [Concomitant]
     Indication: HYPERTENSION
  2. STARLIX [Suspect]
     Indication: TYPE 2 DIABETES MELLITUS
     Dosage: 120 MG, TID
     Route: 048
     Dates: start: 20071021
  3. COMPLEX B FORTE [Concomitant]
     Dosage: 1 DF, BID
     Route: 048
  4. GLYBURIDE [Concomitant]
     Dosage: 2 DF/DAY
     Route: 048
  5. LOSARTAN POTASSIUM [Concomitant]
     Indication: HYPERTENSION
     Dosage: 150 MG/DAY
     Route: 048
  6. LOSARTAN POTASSIUM [Concomitant]
     Indication: HYPERTENSION
     Dosage: UNK, BID
     Route: 048
  7. RINOPRIL [Concomitant]
     Indication: HYPERTENSION
     Dosage: 50 MG, QD
     Route: 048

REACTIONS (7)
  - ANXIETY [None]
  - BLOOD PRESSURE INCREASED [None]
  - CONFUSIONAL STATE [None]
  - HEADACHE [None]
  - HYPERGLYCAEMIA [None]
  - MEMORY IMPAIRMENT [None]
  - MUSCLE SPASMS [None]
